FAERS Safety Report 5331621-X (Version None)
Quarter: 2007Q2

REPORT INFORMATION
  Report Type: 
  Country: None (occurrence: None)
  Receive Date: 20070522
  Receipt Date: 20070510
  Transmission Date: 20071010
  Serious: Yes (Other)
  Sender: FDA-Public Use
  Company Number: US-PFIZER INC-2007038843

PATIENT
  Sex: Male
  Weight: 79.545 kg

DRUGS (4)
  1. CHANTIX [Suspect]
     Indication: SMOKING CESSATION THERAPY
     Dates: start: 20070418, end: 20070506
  2. CELEBREX [Suspect]
  3. LISINOPRIL [Concomitant]
  4. COREG [Concomitant]

REACTIONS (5)
  - ABDOMINAL PAIN UPPER [None]
  - CARDIAC DISORDER [None]
  - INFLUENZA [None]
  - NAUSEA [None]
  - THROMBOSIS [None]
